FAERS Safety Report 8114938-5 (Version None)
Quarter: 2012Q1

REPORT INFORMATION
  Report Type: 
  Country: None (occurrence: None)
  Receive Date: 20120201
  Receipt Date: 20120117
  Transmission Date: 20120608
  Serious: Yes (Hospitalization)
  Sender: FDA-Public Use
  Company Number: 20120028

PATIENT
  Age: 42 Year
  Sex: Female

DRUGS (2)
  1. SPINAL ANESTHESIA, INTRADISCAL (INTRASPINAL) [Concomitant]
  2. SODIUM CHLORIDE INJ [Suspect]
     Indication: PROPHYLAXIS
     Dosage: 10 ML, INTRATHECAL
     Route: 037

REACTIONS (15)
  - CONDITION AGGRAVATED [None]
  - MATERNAL EXPOSURE DURING DELIVERY [None]
  - NAUSEA [None]
  - PARAESTHESIA [None]
  - HEADACHE [None]
  - RADICULAR PAIN [None]
  - ANAESTHETIC COMPLICATION [None]
  - RESPIRATORY RATE INCREASED [None]
  - HYPOAESTHESIA [None]
  - BLOOD PRESSURE SYSTOLIC INCREASED [None]
  - IATROGENIC INJURY [None]
  - CAESAREAN SECTION [None]
  - INJECTION SITE INJURY [None]
  - BACK PAIN [None]
  - HEART RATE INCREASED [None]
